FAERS Safety Report 9786588 (Version 2)
Quarter: 2014Q1

REPORT INFORMATION
  Report Type: Spontaneous
  Country: GB (occurrence: GB)
  Receive Date: 20131227
  Receipt Date: 20140325
  Transmission Date: 20141002
  Serious: Yes (Other)
  Sender: FDA-Public Use
  Company Number: GB-PFIZER INC-2013366821

PATIENT
  Age: 59 Year
  Sex: Female

DRUGS (2)
  1. SULFASALAZINE [Suspect]
     Indication: MOUTH ULCERATION
     Dosage: 1 G, DAILY
  2. SULFASALAZINE [Suspect]
     Indication: PEMPHIGOID

REACTIONS (2)
  - Alveolitis [Recovered/Resolved]
  - Interstitial lung disease [Recovered/Resolved]
